FAERS Safety Report 4777636-1 (Version None)
Quarter: 2005Q3

REPORT INFORMATION
  Report Type: 
  Country: None (occurrence: None)
  Receive Date: 20050921
  Receipt Date: 20050906
  Transmission Date: 20060218
  Serious: Yes (Other)
  Sender: FDA-Public Use
  Company Number: USA0509107388

PATIENT
  Age: 27 Year
  Sex: Male

DRUGS (2)
  1. SYMBYAX [Suspect]
     Indication: DEPRESSION
  2. ZYPREXA [Suspect]

REACTIONS (5)
  - AGGRESSION [None]
  - CONDITION AGGRAVATED [None]
  - DEPRESSION [None]
  - INTENTIONAL SELF-INJURY [None]
  - ROAD TRAFFIC ACCIDENT [None]
